FAERS Safety Report 7530964-9 (Version None)
Quarter: 2011Q2

REPORT INFORMATION
  Report Type: 
  Country: None (occurrence: None)
  Receive Date: 20110531
  Receipt Date: 20110516
  Transmission Date: 20111010
  Serious: Yes (Life-Threatening, Hospitalization, Other)
  Sender: FDA-Public Use
  Company Number: 2011MA005951

PATIENT
  Age: 17 Year
  Sex: Male

DRUGS (1)
  1. SULFATRIM PEDIATRIC [Suspect]
     Indication: SUICIDE ATTEMPT
     Dosage: 1920 MG;1X;

REACTIONS (12)
  - LOSS OF CONSCIOUSNESS [None]
  - MULTIPLE DRUG OVERDOSE INTENTIONAL [None]
  - NAUSEA [None]
  - ELECTROCARDIOGRAM QRS COMPLEX PROLONGED [None]
  - CYANOSIS [None]
  - SINUS BRADYCARDIA [None]
  - BUNDLE BRANCH BLOCK RIGHT [None]
  - VOMITING [None]
  - CARDIO-RESPIRATORY ARREST [None]
  - ACIDOSIS [None]
  - BLOOD PRESSURE DECREASED [None]
  - SUICIDE ATTEMPT [None]
